FAERS Safety Report 15451749 (Version 1)
Quarter: 2018Q4

REPORT INFORMATION
  Report Type: Report from Study
  Country: US (occurrence: US)
  Receive Date: 20181001
  Receipt Date: 20181001
  Transmission Date: 20190204
  Serious: Yes (Hospitalization)
  Sender: FDA-Public Use
  Company Number: US-BAYER-2017-250671

PATIENT
  Age: 69 Year
  Sex: Male

DRUGS (15)
  1. METOPROLOL TARTRATE. [Concomitant]
     Active Substance: METOPROLOL TARTRATE
  2. LORATADINE. [Concomitant]
     Active Substance: LORATADINE
  3. NOVOLOG [Concomitant]
     Active Substance: INSULIN ASPART
  4. NITROGLYCERIN. [Concomitant]
     Active Substance: NITROGLYCERIN
  5. NEXAVAR [Suspect]
     Active Substance: SORAFENIB
     Indication: HEPATOBLASTOMA
     Dosage: 200 MG, BID
     Route: 048
     Dates: start: 20150824, end: 201508
  6. TRAJENTA [Concomitant]
     Active Substance: LINAGLIPTIN
  7. NEXAVAR [Suspect]
     Active Substance: SORAFENIB
     Indication: HEPATOBLASTOMA
     Dosage: UNK
  8. AMLODIPINE BESYLATE. [Concomitant]
     Active Substance: AMLODIPINE BESYLATE
  9. LEVOTHYROXINE SODIUM. [Concomitant]
     Active Substance: LEVOTHYROXINE SODIUM
  10. LOTAN [LORATIDINE] [Concomitant]
  11. OMEPRAZOLE. [Concomitant]
     Active Substance: OMEPRAZOLE
  12. ZEBUTAL [Concomitant]
     Active Substance: ACETAMINOPHEN\BUTALBITAL\CAFFEINE
  13. NEXAVAR [Suspect]
     Active Substance: SORAFENIB
     Indication: HEPATOBLASTOMA
     Dosage: 200 MG, BID
     Route: 048
     Dates: start: 20150827
  14. NEXAVAR [Suspect]
     Active Substance: SORAFENIB
     Indication: HEPATOBLASTOMA
     Dosage: 200 MG, BID
     Route: 048
  15. CALCITRIOL. [Concomitant]
     Active Substance: CALCITRIOL

REACTIONS (6)
  - Myocardial infarction [Not Recovered/Not Resolved]
  - Hospitalisation [Not Recovered/Not Resolved]
  - Hospitalisation [Recovered/Resolved]
  - Cardiac failure congestive [None]
  - Neoplasm [Not Recovered/Not Resolved]
  - Off label use [None]

NARRATIVE: CASE EVENT DATE: 20150824
